FAERS Safety Report 6635420-8 (Version None)
Quarter: 2010Q1

REPORT INFORMATION
  Report Type: 
  Country: None (occurrence: None)
  Receive Date: 20100315
  Receipt Date: 20091007
  Transmission Date: 20100710
  Serious: No
  Sender: FDA-Public Use
  Company Number: US-ABBOTT-09P-163-0601047-00

PATIENT
  Sex: Male

DRUGS (3)
  1. DEPAKOTE [Suspect]
     Indication: BIPOLAR DISORDER
     Dosage: DAILY
     Dates: start: 20090809
  2. ANDROGEL [Suspect]
     Indication: BLOOD TESTOSTERONE DECREASED
     Dosage: 1% GEL, 2.5 GRAMS DAILY
     Dates: start: 20090701, end: 20090807
  3. ANDROGEL [Suspect]
     Dosage: 1% GEL, 5 GRAMS DAILY
     Dates: start: 20090814

REACTIONS (1)
  - MUSCLE FATIGUE [None]
